FAERS Safety Report 8175263-X (Version None)
Quarter: 2012Q1

REPORT INFORMATION
  Report Type: 
  Country: None (occurrence: None)
  Receive Date: 20120229
  Receipt Date: 20120223
  Transmission Date: 20120608
  Serious: Yes (Other)
  Sender: FDA-Public Use
  Company Number: US-PFIZER INC-2011234019

PATIENT
  Sex: Male

DRUGS (2)
  1. METHIMAZOLE [Suspect]
     Dosage: UNK
     Route: 048
  2. TAPAZOLE [Suspect]
     Route: 048

REACTIONS (1)
  - COELIAC DISEASE [None]
